FAERS Safety Report 5759649-6 (Version None)
Quarter: 2008Q2

REPORT INFORMATION
  Report Type: 
  Country: None (occurrence: None)
  Receive Date: 20080605
  Receipt Date: 20080528
  Transmission Date: 20081010
  Serious: Yes (Hospitalization)
  Sender: FDA-Public Use
  Company Number: ES-AVENTIS-200814981GDDC

PATIENT
  Age: 67 Year
  Sex: Male

DRUGS (13)
  1. DOCETAXEL [Suspect]
     Indication: PROSTATE CANCER
     Route: 042
     Dates: start: 20080404, end: 20080404
  2. DOCETAXEL [Suspect]
     Route: 042
     Dates: start: 20080502, end: 20080502
  3. MONOCLONAL ANTIBODIES [Suspect]
     Indication: PROSTATE CANCER
     Route: 042
     Dates: start: 20080404, end: 20080404
  4. MONOCLONAL ANTIBODIES [Suspect]
     Route: 042
     Dates: start: 20080502, end: 20080502
  5. PREDNISONE TAB [Suspect]
     Indication: PROSTATE CANCER
     Route: 048
  6. BISOPROLOL FUMARATE [Concomitant]
     Route: 048
  7. ENALAPRIL MALEATE [Concomitant]
     Route: 048
  8. PANTOPRAZOLE [Concomitant]
     Route: 048
  9. PREVENCOR                          /01326102/ [Concomitant]
     Route: 048
  10. TROMALYT [Concomitant]
     Route: 048
  11. CARDURA [Concomitant]
     Route: 048
  12. PROCRIN [Concomitant]
     Route: 030
  13. LEXATIN [Concomitant]
     Route: 048

REACTIONS (3)
  - ACUTE PRERENAL FAILURE [None]
  - DIARRHOEA [None]
  - NEUTROPENIA [None]
